FAERS Safety Report 15877697 (Version 1)
Quarter: 2019Q1

REPORT INFORMATION
  Report Type: Spontaneous
  Country: US (occurrence: US)
  Receive Date: 20190128
  Receipt Date: 20190128
  Transmission Date: 20190417
  Serious: No
  Sender: FDA-Public Use
  Company Number: US-AUROBINDO-AUR-APU-2018-022648

PATIENT
  Sex: Male

DRUGS (2)
  1. MIRTAZAPINE ORALLY DISINTEGRATING TABLETS 45 MG [Suspect]
     Active Substance: MIRTAZAPINE
     Indication: SLEEP DISORDER
  2. MIRTAZAPINE ORALLY DISINTEGRATING TABLETS 45 MG [Suspect]
     Active Substance: MIRTAZAPINE
     Indication: DEPRESSION
     Dosage: UNK
     Route: 065
     Dates: start: 20180323

REACTIONS (1)
  - Drug ineffective [Unknown]
